FAERS Safety Report 5099183-2 (Version None)
Quarter: 2006Q3

REPORT INFORMATION
  Report Type: 
  Country: None (occurrence: None)
  Receive Date: 20060728
  Receipt Date: 20060403
  Transmission Date: 20061208
  Serious: No
  Sender: FDA-Public Use
  Company Number: COT_0550_2006

PATIENT
  Age: 40 Year
  Sex: Male
  Weight: 63.5036 kg

DRUGS (11)
  1. VENTAVIS [Suspect]
     Indication: PULMONARY HYPERTENSION
     Dosage: 2.5 MCG 4 TIMES A DAY IH
     Route: 055
     Dates: start: 20060207
  2. TRUVADA [Concomitant]
  3. SUSTIVA [Concomitant]
  4. DAPSONE [Concomitant]
  5. TYLENOL EX-STR [Concomitant]
  6. ALBUTEROL [Concomitant]
  7. BENADRYL [Concomitant]
  8. AMBIEN [Concomitant]
  9. NIFEDIPINE [Concomitant]
  10. OXANDROLONE [Concomitant]
  11. LORAZEPAM [Concomitant]

REACTIONS (3)
  - DIARRHOEA [None]
  - PAIN IN EXTREMITY [None]
  - PAIN IN JAW [None]
